FAERS Safety Report 8268415-1 (Version None)
Quarter: 2012Q2

REPORT INFORMATION
  Report Type: 
  Country: None (occurrence: None)
  Receive Date: 20120409
  Receipt Date: 20120402
  Transmission Date: 20120825
  Serious: Yes (Hospitalization)
  Sender: FDA-Public Use
  Company Number: US-ABBOTT-12P-163-0920725-00

PATIENT
  Sex: Female
  Weight: 59.474 kg

DRUGS (8)
  1. CARAFATE [Concomitant]
     Indication: GASTRIC DISORDER
  2. VITAMIN B COMPLEX CAP [Concomitant]
     Indication: VITAMIN SUPPLEMENTATION
  3. BUPROPION HCL [Concomitant]
     Indication: DEPRESSION
  4. HUMIRA [Suspect]
     Dates: start: 20120123
  5. VITAMIN D [Concomitant]
     Indication: VITAMIN SUPPLEMENTATION
  6. LOVAZA [Concomitant]
     Indication: MEDICAL DIET
  7. HUMIRA [Suspect]
     Indication: CROHN'S DISEASE
     Dates: start: 20090201, end: 20111201
  8. HUMIRA [Suspect]
     Dates: start: 20120109, end: 20120109

REACTIONS (11)
  - RED BLOOD CELL COUNT DECREASED [None]
  - COUGH [None]
  - CROHN'S DISEASE [None]
  - GAIT DISTURBANCE [None]
  - ANAEMIA [None]
  - RESPIRATORY TRACT CONGESTION [None]
  - SWELLING FACE [None]
  - MYOCARDIAL INFARCTION [None]
  - FEELING COLD [None]
  - CHEST PAIN [None]
  - RECTAL HAEMORRHAGE [None]
